FAERS Safety Report 8855769 (Version 1)
Quarter: 2012Q4

REPORT INFORMATION
  Report Type: 
  Country: US (occurrence: US)
  Receive Date: 20121023
  Receipt Date: 20121023
  Transmission Date: 20130627
  Serious: No
  Sender: FDA-Public Use
  Company Number: US-AMGEN-USASP2012058876

PATIENT
  Sex: Female
  Weight: 104.31 kg

DRUGS (9)
  1. ENBREL [Suspect]
     Indication: PRODUCT USED FOR UNKNOWN INDICATION
     Dosage: 50 mg/ml, qwk
     Route: 058
  2. CYMBALTA [Concomitant]
     Dosage: 60 mg, UNK
  3. HYZAAR [Concomitant]
     Dosage: 100-25
  4. WELLBUTRIN [Concomitant]
     Dosage: 150 mg, UNK
  5. SYNTHROID [Concomitant]
     Dosage: 112 mcg
  6. SIMVASTATIN [Concomitant]
     Dosage: 20 mg, UNK
  7. ESGIC-PLUS [Concomitant]
     Dosage: UNK
  8. HYDROCHLOROTH [Concomitant]
     Dosage: 25 mg, UNK
  9. POTASSIUM CHLORIDE [Concomitant]
     Dosage: 10 mEq, UNK

REACTIONS (3)
  - Oedema peripheral [Unknown]
  - Sinusitis [Recovered/Resolved]
  - Drug ineffective [Unknown]
